FAERS Safety Report 13022778 (Version 1)
Quarter: 2016Q4

REPORT INFORMATION
  Report Type: Spontaneous
  Country: DE (occurrence: DE)
  Receive Date: 20161213
  Receipt Date: 20161213
  Transmission Date: 20170207
  Serious: Yes (Disabling)
  Sender: FDA-Public Use
  Company Number: DE-TEVA-717087GER

PATIENT
  Age: 78 Year
  Sex: Female
  Weight: 69 kg

DRUGS (14)
  1. ALLOPURINOL AL [Concomitant]
     Dosage: 300 MILLIGRAM DAILY;
  2. PREDNI-H-TABLINEN [Concomitant]
     Dosage: 5 MILLIGRAM DAILY;
  3. PANTOPRAZOL 1 A PHARMA [Concomitant]
     Dosage: 20 MILLIGRAM DAILY;
  4. LOSARTAN. [Concomitant]
     Active Substance: LOSARTAN
     Dosage: 50 MILLIGRAM DAILY;
  5. HERBAL NOS [Concomitant]
     Active Substance: HERBALS
     Dosage: 20 GRAM DAILY;
  6. BECLOMETASON-CT [Concomitant]
     Dosage: .4 MILLIGRAM DAILY;
  7. AMINEURIN [Concomitant]
     Active Substance: AMITRIPTYLINE HYDROCHLORIDE
     Dosage: 40 MILLIGRAM DAILY;
  8. SIMVASTATIN. [Suspect]
     Active Substance: SIMVASTATIN
     Indication: HYPERCHOLESTEROLAEMIA
  9. TORASEMID [Concomitant]
     Active Substance: TORSEMIDE
     Dosage: 5 MILLIGRAM DAILY;
  10. BERODUAL [Concomitant]
     Active Substance: FENOTEROL HYDROBROMIDE\IPRATROPIUM BROMIDE
     Dosage: 3 DOSAGE FORMS DAILY;
  11. THEO-CT [Concomitant]
     Dosage: 500 MILLIGRAM DAILY;
  12. HYDROCHLOROTHIAZID [Suspect]
     Active Substance: HYDROCHLOROTHIAZIDE
     Indication: HYPERTENSION
  13. CLOPIDOGREL [Concomitant]
     Active Substance: CLOPIDOGREL BISULFATE
     Dosage: 75 MILLIGRAM DAILY;
  14. METODURA [Concomitant]
     Dosage: 100 MILLIGRAM DAILY;

REACTIONS (1)
  - Interstitial lung disease [Not Recovered/Not Resolved]

NARRATIVE: CASE EVENT DATE: 2016
